FAERS Safety Report 16294429 (Version 1)
Quarter: 2019Q2

REPORT INFORMATION
  Report Type: Spontaneous
  Country: US (occurrence: US)
  Receive Date: 20190509
  Receipt Date: 20190509
  Transmission Date: 20190711
  Serious: No
  Sender: FDA-Public Use
  Company Number: US-ROCHE-2184801

PATIENT
  Sex: Male

DRUGS (1)
  1. ESBRIET [Suspect]
     Active Substance: PIRFENIDONE
     Indication: PULMONARY FIBROSIS
     Dosage: ONGOING
     Route: 048
     Dates: start: 20180111

REACTIONS (5)
  - Headache [Unknown]
  - Disorientation [Unknown]
  - Sunburn [Unknown]
  - Dizziness [Unknown]
  - Nausea [Unknown]
